FAERS Safety Report 5675247-7 (Version None)
Quarter: 2008Q1

REPORT INFORMATION
  Report Type: 
  Country: None (occurrence: None)
  Receive Date: 20080320
  Receipt Date: 20080310
  Transmission Date: 20080703
  Serious: Yes (Other)
  Sender: FDA-Public Use
  Company Number: US-ELI_LILLY_AND_COMPANY-US200802002353

PATIENT
  Age: 83 Year
  Sex: Female
  Weight: 56.689 kg

DRUGS (7)
  1. FORTEO [Suspect]
     Indication: OSTEOPOROSIS
     Dosage: 20 UG, UNK
     Dates: start: 20080109, end: 20080113
  2. VERAPAMIL [Concomitant]
  3. SYNTHROID [Concomitant]
  4. HYDROCODONE BITARTRATE [Concomitant]
  5. ERGOCALCIFEROL [Concomitant]
  6. SULCRATE [Concomitant]
  7. CALTRATE [Concomitant]

REACTIONS (2)
  - DIZZINESS [None]
  - LOSS OF CONSCIOUSNESS [None]
